FAERS Safety Report 9660459 (Version 2)
Quarter: 2013Q4

REPORT INFORMATION
  Report Type: Spontaneous
  Country: US (occurrence: US)
  Receive Date: 20131031
  Receipt Date: 20131114
  Transmission Date: 20140711
  Serious: No
  Sender: FDA-Public Use
  Company Number: US-009507513-1310USA013598

PATIENT
  Age: 64 Year
  Sex: Female
  Weight: 65.76 kg

DRUGS (1)
  1. OXYTROL FOR WOMEN [Suspect]
     Indication: HYPERTONIC BLADDER
     Dosage: 1 DF, Q4D
     Route: 062
     Dates: start: 20130927, end: 20131004

REACTIONS (2)
  - Vulvovaginal pruritus [Recovered/Resolved]
  - Vulvovaginal dryness [Unknown]
